FAERS Safety Report 6972616-X (Version None)
Quarter: 2010Q3

REPORT INFORMATION
  Report Type: 
  Country: None (occurrence: None)
  Receive Date: 20100909
  Receipt Date: 20100830
  Transmission Date: 20110219
  Serious: Yes (Other)
  Sender: FDA-Public Use
  Company Number: SE-PFIZER INC-2010110187

PATIENT
  Age: 50 Year
  Sex: Male

DRUGS (5)
  1. ATARAX [Suspect]
     Indication: URTICARIA
     Dosage: 50 MG, DAILY
     Route: 048
     Dates: start: 20091005, end: 20091006
  2. BETAPRED [Concomitant]
     Indication: URTICARIA
  3. HYDROCORTISONE [Concomitant]
     Indication: URTICARIA
  4. AZELAIC ACID [Concomitant]
  5. EMOVAT [Concomitant]

REACTIONS (3)
  - DYSPNOEA [None]
  - LIP SWELLING [None]
  - RASH [None]
